FAERS Safety Report 17164921 (Version 2)
Quarter: 2020Q4

REPORT INFORMATION
  Report Type: Spontaneous
  Country: US (occurrence: US)
  Receive Date: 20191217
  Receipt Date: 20201130
  Transmission Date: 20210113
  Serious: No
  Sender: FDA-Public Use
  Company Number: US-ROCHE-2395938

PATIENT
  Sex: Female

DRUGS (5)
  1. ATORVASTATIN [Concomitant]
     Active Substance: ATORVASTATIN
  2. TEMAZEPAM. [Concomitant]
     Active Substance: TEMAZEPAM
  3. LUCENTIS [Suspect]
     Active Substance: RANIBIZUMAB
     Indication: NEOVASCULAR AGE-RELATED MACULAR DEGENERATION
     Dosage: FORM STRENGTH: 0.5 MG / 0.05 ML ?PRE-FILLED SYRINGE
     Route: 050
     Dates: start: 20190204
  4. CLONAZEPAM. [Concomitant]
     Active Substance: CLONAZEPAM
  5. LUCENTIS [Suspect]
     Active Substance: RANIBIZUMAB
     Indication: CHOROIDAL NEOVASCULARISATION

REACTIONS (1)
  - Eye irritation [Not Recovered/Not Resolved]
